FAERS Safety Report 13781514 (Version 1)
Quarter: 2017Q3

REPORT INFORMATION
  Report Type: Spontaneous
  Country: US (occurrence: US)
  Receive Date: 20170724
  Receipt Date: 20170724
  Transmission Date: 20171127
  Serious: No
  Sender: FDA-Public Use
  Company Number: None

PATIENT
  Age: 34 Year
  Sex: Female
  Weight: 66.6 kg

DRUGS (1)
  1. BUPROPION HYDROCHLORIDE XL [Suspect]
     Active Substance: BUPROPION HYDROCHLORIDE
     Indication: DEPRESSION
     Dosage: ?          OTHER STRENGTH:GM;QUANTITY:1 TABLET(S);?
     Route: 048
     Dates: start: 20170601, end: 20170724

REACTIONS (7)
  - Asthenia [None]
  - Product substitution issue [None]
  - Somnolence [None]
  - Disturbance in attention [None]
  - Depressed mood [None]
  - Drug ineffective [None]
  - Eating disorder [None]

NARRATIVE: CASE EVENT DATE: 20170724
